FAERS Safety Report 9265001 (Version 1)
Quarter: 2013Q2

REPORT INFORMATION
  Report Type: Spontaneous
  Country: US (occurrence: US)
  Receive Date: 20130501
  Receipt Date: 20130501
  Transmission Date: 20140414
  Serious: Yes (Hospitalization)
  Sender: FDA-Public Use
  Company Number: US-BAYER-2013-052715

PATIENT
  Age: 44 Year
  Sex: Female
  Weight: 98.87 kg

DRUGS (12)
  1. YAZ [Suspect]
     Indication: PREMENSTRUAL SYNDROME
  2. YASMIN [Suspect]
  3. WOMEN^S MULTI [Concomitant]
     Dosage: ONE DAILY
  4. DOXYCYCLINE [Concomitant]
     Dosage: 100 MG, UNK
  5. HYDROCODONE [Concomitant]
     Dosage: 7.5-200 MG
  6. METHYLPREDNISOLONE [Concomitant]
     Dosage: 4 MG, UNK
  7. AVELOX [Concomitant]
     Dosage: 400 MG, UNK
  8. HISTINEX HC [Concomitant]
     Dosage: 5-2.5-2
  9. MECLIZINE HCL [Concomitant]
     Dosage: 12.5 MG, UNK
     Dates: start: 20080714
  10. METROGEL [Concomitant]
     Dosage: 1 %, UNK
  11. SOLODYN [Concomitant]
     Dosage: 135 MG, UNK
  12. AZITHROMYCIN [Concomitant]
     Dosage: 250 MG, UNK

REACTIONS (2)
  - Pulmonary embolism [Recovering/Resolving]
  - Cholecystitis acute [None]
